FAERS Safety Report 5266898-2 (Version None)
Quarter: 2007Q1

REPORT INFORMATION
  Report Type: 
  Country: None (occurrence: None)
  Receive Date: 20070312
  Receipt Date: 20070306
  Transmission Date: 20070707
  Serious: Yes (Hospitalization, Other)
  Sender: FDA-Public Use
  Company Number: 163-C5013-05080231

PATIENT
  Age: 65 Year
  Sex: Male
  Weight: 89.9 kg

DRUGS (2)
  1. CC-5013 (LENALIDOMIDE) (CAPSULES) [Suspect]
     Indication: MULTIPLE MYELOMA
     Dosage: 25 MG, QD; DAYS 1-21 EVERY 28
     Dates: start: 20050701
  2. DEXAMETHASONE TAB [Suspect]
     Indication: MULTIPLE MYELOMA
     Dosage: 40 MG, QD DAYS 1-4, 9-12 AND 17-20 EVERY 28 DAYS, ORAL
     Route: 048
     Dates: start: 20050701

REACTIONS (5)
  - DIVERTICULAR PERFORATION [None]
  - DIVERTICULITIS [None]
  - HYPOCALCAEMIA [None]
  - HYPONATRAEMIA [None]
  - PERITONITIS [None]
